FAERS Safety Report 8379594-X (Version None)
Quarter: 2012Q1

REPORT INFORMATION
  Report Type: 
  Country: None (occurrence: None)
  Receive Date: 20120323
  Receipt Date: 20110325
  Transmission Date: 20120608
  Serious: Yes (Hospitalization)
  Sender: FDA-Public Use
  Company Number: 163-21880-11033145

PATIENT
  Age: 84 Year
  Sex: Female

DRUGS (19)
  1. NITROGLYCERIN [Concomitant]
  2. REVLIMID [Suspect]
     Indication: MYELODYSPLASTIC SYNDROME
     Dosage: 5 MG, 1 IN 1 D, PO
     Route: 048
     Dates: start: 20070726
  3. COLACE (DOCUSATE SODIUM) [Concomitant]
  4. ALLOPURINOL [Concomitant]
  5. LEVOXYL [Concomitant]
  6. PROCRIT [Concomitant]
  7. VOLTAREN [Concomitant]
  8. PANTOPRAZOLE [Concomitant]
  9. EVISTA [Concomitant]
  10. COUMADIN [Concomitant]
  11. CALCIUM [Concomitant]
  12. MULTI-VITAMINS [Suspect]
  13. CARVEDILOL [Concomitant]
  14. SIMVASTATIN [Concomitant]
  15. HYDROCODONE/APAP (PROCET) [Concomitant]
  16. COMBIVENT [Concomitant]
  17. DETROL LA [Concomitant]
  18. MIRALAX [Concomitant]
  19. LEXAPRO [Concomitant]

REACTIONS (2)
  - DECREASED APPETITE [None]
  - RETCHING [None]
